FAERS Safety Report 25014671 (Version 2)
Quarter: 2025Q1

REPORT INFORMATION
  Report Type: Spontaneous
  Country: US (occurrence: US)
  Receive Date: 20250226
  Receipt Date: 20250328
  Transmission Date: 20250409
  Serious: No
  Sender: PFIZER
  Company Number: US-PFIZER INC-202500041649

PATIENT
  Sex: Male

DRUGS (2)
  1. BEVACIZUMAB [Suspect]
     Active Substance: BEVACIZUMAB
     Dates: start: 20240311
  2. CAPECITABINE [Suspect]
     Active Substance: CAPECITABINE
     Dates: start: 20240311

REACTIONS (1)
  - Platelet count decreased [Unknown]
